FAERS Safety Report 9268085 (Version 1)
Quarter: 2013Q2

REPORT INFORMATION
  Report Type: Spontaneous
  Country: FR (occurrence: FR)
  Receive Date: 20130502
  Receipt Date: 20130502
  Transmission Date: 20140414
  Serious: Yes (Hospitalization)
  Sender: FDA-Public Use
  Company Number: FR-PFIZER INC-2012297323

PATIENT
  Age: 50 Year
  Sex: Female
  Weight: 79 kg

DRUGS (1)
  1. SOMAVERT [Suspect]
     Indication: ACROMEGALY
     Dosage: 10 MG, 1X/DAY
     Dates: start: 20120411, end: 20120730

REACTIONS (2)
  - Depression [Recovered/Resolved]
  - Abdominal pain upper [Recovered/Resolved]
